FAERS Safety Report 8020329 (Version 4)
Quarter: 2013Q2

REPORT INFORMATION
  Report Type: Spontaneous
  Country: US (occurrence: US)
  Receive Date: 20110705
  Receipt Date: 20130403
  Transmission Date: 20140414
  Serious: Yes (Life-Threatening, Hospitalization)
  Sender: FDA-Public Use
  Company Number: US-BAYER-2011-057068

PATIENT
  Age: 32 Year
  Sex: Female
  Weight: 61.22 kg

DRUGS (4)
  1. YASMIN [Suspect]
     Indication: CONTRACEPTION
     Dosage: UNK
     Dates: start: 200203, end: 200701
  2. LEVOXYL [Concomitant]
     Dosage: 50 MG, UNK
     Dates: start: 20061024
  3. CLONAZEPAM [Concomitant]
     Dosage: UNK
     Dates: start: 20061229
  4. PROPOXYPHENE NAPSYLATE W/ACETAMINOPHENE [Concomitant]
     Dosage: UNK
     Dates: start: 20070103

REACTIONS (8)
  - Deep vein thrombosis [Recovered/Resolved]
  - Thrombosis [None]
  - Injury [None]
  - General physical health deterioration [Recovered/Resolved]
  - Pain [Recovered/Resolved]
  - Anhedonia [Recovered/Resolved]
  - Anxiety [None]
  - Emotional distress [None]
